FAERS Safety Report 10141797 (Version 1)
Quarter: 2014Q2

REPORT INFORMATION
  Report Type: Spontaneous
  Country: GB (occurrence: GB)
  Receive Date: 20140429
  Receipt Date: 20140429
  Transmission Date: 20141212
  Serious: Yes (Disabling)
  Sender: FDA-Public Use
  Company Number: GB-B.I. PHARMACEUTICALS,INC./RIDGEFIELD-2014-BI-18136UK

PATIENT
  Age: 72 Year
  Sex: Male
  Weight: 88 kg

DRUGS (27)
  1. TRAJENTA [Suspect]
     Indication: DIABETES MELLITUS
     Route: 065
     Dates: start: 20140314
  2. ASPIRIN [Concomitant]
     Route: 065
     Dates: start: 20140411
  3. ASPIRIN [Concomitant]
     Route: 065
     Dates: start: 20140219, end: 20140319
  4. ASPIRIN [Concomitant]
     Route: 065
     Dates: start: 20131231, end: 20140128
  5. ATORVASTATIN [Concomitant]
     Route: 065
     Dates: start: 20140411
  6. ATORVASTATIN [Concomitant]
     Route: 065
     Dates: start: 20140219, end: 20140319
  7. ATORVASTATIN [Concomitant]
     Route: 065
     Dates: start: 20131231, end: 20140128
  8. BENDROFLUMETHIAZIDE [Concomitant]
     Route: 065
     Dates: start: 20140411
  9. BENDROFLUMETHIAZIDE [Concomitant]
     Route: 065
     Dates: start: 20140219, end: 20140220
  10. CIPROFLOXACIN [Concomitant]
     Route: 065
     Dates: start: 20140326, end: 20140402
  11. DOXAZOSIN [Concomitant]
     Route: 065
     Dates: start: 20140411
  12. DOXAZOSIN [Concomitant]
     Route: 065
     Dates: start: 20140219, end: 20140319
  13. DOXAZOSIN [Concomitant]
     Route: 065
     Dates: end: 20140128
  14. FLUCLOXACILLIN [Concomitant]
     Route: 065
     Dates: start: 20140321, end: 20140328
  15. FLUMETHASONE PIVALATE [Concomitant]
     Route: 065
     Dates: start: 20140321, end: 20140328
  16. GLICLAZIDE [Concomitant]
     Route: 065
     Dates: start: 20131231
  17. IRBESARTAN [Concomitant]
     Route: 065
     Dates: start: 20131231, end: 20140128
  18. LISINOPRIL [Concomitant]
     Route: 065
     Dates: start: 20140411
  19. LISINOPRIL [Concomitant]
     Route: 065
     Dates: start: 20140219, end: 20140319
  20. LISINOPRIL [Concomitant]
     Route: 065
     Dates: start: 20131231, end: 20140128
  21. METFORMIN [Concomitant]
     Route: 065
     Dates: start: 20131231
  22. MOXONIDINE [Concomitant]
     Route: 065
     Dates: start: 20140411
  23. MOXONIDINE [Concomitant]
     Route: 065
     Dates: start: 20140219, end: 20140319
  24. MOXONIDINE [Concomitant]
     Route: 065
     Dates: start: 20131231, end: 20140128
  25. NEBIVOLOL [Concomitant]
     Route: 065
     Dates: start: 20140411
  26. NEBIVOLOL [Concomitant]
     Route: 065
     Dates: start: 20140219, end: 20140319
  27. NEBIVOLOL [Concomitant]
     Route: 065
     Dates: start: 20131231, end: 20140128

REACTIONS (4)
  - Mood altered [Not Recovered/Not Resolved]
  - Anxiety [Not Recovered/Not Resolved]
  - Feeling abnormal [Not Recovered/Not Resolved]
  - Visual impairment [Not Recovered/Not Resolved]
